FAERS Safety Report 7247642-6 (Version None)
Quarter: 2011Q1

REPORT INFORMATION
  Report Type: 
  Country: None (occurrence: None)
  Receive Date: 20110127
  Receipt Date: 20110112
  Transmission Date: 20110831
  Serious: Yes (Disabling)
  Sender: FDA-Public Use
  Company Number: GB-JNJFOC-20110101999

PATIENT
  Age: 67 Year
  Sex: Male
  Weight: 73 kg

DRUGS (4)
  1. ASPIRIN [Concomitant]
  2. OMEPRAZOLE [Concomitant]
  3. TRAMADOL HCL [Suspect]
     Indication: PAIN
     Route: 048
  4. IRON [Concomitant]

REACTIONS (6)
  - BENIGN PROSTATIC HYPERPLASIA [None]
  - MEMORY IMPAIRMENT [None]
  - PRURITUS [None]
  - PROSTATIC SPECIFIC ANTIGEN INCREASED [None]
  - ALOPECIA [None]
  - MALAISE [None]
